FAERS Safety Report 15664352 (Version 1)
Quarter: 2018Q4

REPORT INFORMATION
  Report Type: Spontaneous
  Country: US (occurrence: US)
  Receive Date: 20181127
  Receipt Date: 20181127
  Transmission Date: 20190205
  Serious: Yes (Other)
  Sender: FDA-Public Use
  Company Number: None

PATIENT
  Sex: Female
  Weight: 115.2 kg

DRUGS (2)
  1. HYDROCODONE 5MG TAB [Suspect]
     Active Substance: HYDROCODONE
     Indication: ADRENAL INSUFFICIENCY
     Dosage: ?          QUANTITY:1 TABLET(S);?
     Route: 048
  2. HYDROCORTISONE 5MG TABLETS [Suspect]
     Active Substance: HYDROCORTISONE
     Indication: ADRENAL INSUFFICIENCY
     Dosage: ?          QUANTITY:1 TABLET(S);?
     Route: 048

REACTIONS (2)
  - Therapeutic response changed [None]
  - Adrenocortical insufficiency acute [None]
